FAERS Safety Report 7734967-0 (Version None)
Quarter: 2011Q3

REPORT INFORMATION
  Report Type: 
  Country: None (occurrence: None)
  Receive Date: 20110907
  Receipt Date: 20110830
  Transmission Date: 20111222
  Serious: Yes (Hospitalization)
  Sender: FDA-Public Use
  Company Number: PHHY2011IT78115

PATIENT
  Sex: Female

DRUGS (2)
  1. AMIODARONE HCL [Suspect]
  2. SIMVASTATIN [Suspect]

REACTIONS (1)
  - INTERSTITIAL LUNG DISEASE [None]
